FAERS Safety Report 7731669-1 (Version None)
Quarter: 2011Q3

REPORT INFORMATION
  Report Type: 
  Country: None (occurrence: None)
  Receive Date: 20110906
  Receipt Date: 20110830
  Transmission Date: 20111222
  Serious: Yes (Death)
  Sender: FDA-Public Use
  Company Number: CH-PFIZER INC-2011202599

PATIENT
  Age: 53 Year
  Sex: Male

DRUGS (16)
  1. VORICONAZOLE [Suspect]
     Dosage: 600 MG, 2X/DAY
     Route: 048
     Dates: start: 20031208, end: 20031209
  2. VORICONAZOLE [Suspect]
     Dosage: 350 MG, 2X/DAY
     Route: 048
     Dates: start: 20031127, end: 20031127
  3. PREDNISONE [Concomitant]
     Dosage: 40 MG, 1X/DAY
  4. DEOXYCHOLATE AMPHOTERICIN B [Concomitant]
     Dosage: UNK
     Dates: start: 20031210, end: 20031217
  5. PYRAZINAMIDE [Concomitant]
     Indication: TUBERCULOSIS
     Dosage: UNK
     Dates: start: 20031121
  6. PHENYTOIN [Concomitant]
     Dosage: UNK
     Dates: start: 20031123, end: 20031219
  7. DEOXYCHOLATE AMPHOTERICIN B [Concomitant]
     Indication: ANTIFUNGAL TREATMENT
     Dosage: UNK
     Dates: start: 20031120
  8. VORICONAZOLE [Suspect]
     Indication: CEREBRAL ASPERGILLOSIS
     Dosage: 400 MG, 2X/DAY
     Route: 048
     Dates: start: 20031126, end: 20031126
  9. VORICONAZOLE [Suspect]
     Dosage: 200 MG, 2X/DAY
     Route: 048
     Dates: start: 20031128, end: 20031207
  10. VORICONAZOLE [Suspect]
     Dosage: 200 MG, 2X/DAY
     Route: 048
     Dates: start: 20040107, end: 20040123
  11. CYCLOSPORINE [Concomitant]
     Dosage: UNK
  12. ETHAMBUTOL [Concomitant]
     Indication: TUBERCULOSIS
     Dosage: UNK
     Dates: start: 20031121
  13. VORICONAZOLE [Suspect]
     Dosage: 400 MG, 2X/DAY
     Route: 048
     Dates: start: 20031210, end: 20040106
  14. RIFAMPIN [Concomitant]
     Indication: TUBERCULOSIS
     Dosage: UNK
     Dates: start: 20031121, end: 20031125
  15. RIFABUTIN [Concomitant]
     Indication: TUBERCULOSIS
     Dosage: UNK
     Dates: start: 20031126, end: 20031127
  16. ISONIAZID [Concomitant]
     Indication: TUBERCULOSIS
     Dosage: UNK
     Dates: start: 20031121

REACTIONS (1)
  - CEREBRAL HAEMORRHAGE [None]
